FAERS Safety Report 20709811 (Version 3)
Quarter: 2022Q3

REPORT INFORMATION
  Report Type: Spontaneous
  Country: EG (occurrence: EG)
  Receive Date: 20220414
  Receipt Date: 20220816
  Transmission Date: 20221027
  Serious: Yes (Hospitalization)
  Sender: FDA-Public Use
  Company Number: EG-PFIZER INC-202200516273

PATIENT
  Age: 52 Year
  Sex: Female

DRUGS (2)
  1. IBRANCE [Suspect]
     Active Substance: PALBOCICLIB
     Indication: Breast cancer metastatic
     Dosage: 1 CAP DAILY FOR 3 WEEKS ON AND 1 WEEK OFF
     Dates: start: 20220208
  2. FASLODEX [Concomitant]
     Active Substance: FULVESTRANT
     Dosage: 50 MG DAY ONE, 15, 28 THEN EVERY MONTH

REACTIONS (1)
  - Cardiovascular disorder [Unknown]
